FAERS Safety Report 9337073 (Version 1)
Quarter: 2013Q2

REPORT INFORMATION
  Report Type: Spontaneous
  Country: SE (occurrence: SE)
  Receive Date: 20130607
  Receipt Date: 20130607
  Transmission Date: 20140414
  Serious: Yes (Other)
  Sender: FDA-Public Use
  Company Number: SE-BAXTER-2013BAX020832

PATIENT
  Age: 69 Year
  Sex: Male

DRUGS (3)
  1. FLUCONAZOLE BAXTER 2 MG/ML, INFUSIONSV?TSKA, L?SNING [Suspect]
     Indication: ORAL DISORDER
     Route: 065
  2. ACICLOVIR [Suspect]
     Indication: ORAL DISORDER
     Route: 065
  3. CLOBETASOL [Suspect]
     Indication: ORAL DISORDER
     Route: 065

REACTIONS (1)
  - Drug ineffective [Not Recovered/Not Resolved]
